FAERS Safety Report 5917012-9 (Version None)
Quarter: 2008Q4

REPORT INFORMATION
  Report Type: 
  Country: None (occurrence: None)
  Receive Date: 20081009
  Receipt Date: 20080926
  Transmission Date: 20090506
  Serious: No
  Sender: FDA-Public Use
  Company Number: 20085299

PATIENT
  Age: 4 Year
  Sex: Male

DRUGS (1)
  1. LIORESAL [Suspect]
     Indication: MUSCLE SPASTICITY
     Dosage: MCG, DAILY, INTRATHECAL
     Route: 037

REACTIONS (4)
  - HYPERTONIA [None]
  - IRRITABILITY [None]
  - NO THERAPEUTIC RESPONSE [None]
  - WITHDRAWAL SYNDROME [None]
